FAERS Safety Report 8167416-1 (Version None)
Quarter: 2012Q1

REPORT INFORMATION
  Report Type: 
  Country: None (occurrence: None)
  Receive Date: 20120221
  Receipt Date: 20120210
  Transmission Date: 20120608
  Serious: Yes (Hospitalization)
  Sender: FDA-Public Use
  Company Number: DSU-2010-05309

PATIENT
  Age: 73 Year
  Sex: Female
  Weight: 95.2554 kg

DRUGS (6)
  1. WELCHOL [Suspect]
     Indication: HYPERCHOLESTEROLAEMIA
     Dosage: 375 MG (1875 MG, BID), PER ORAL; 370 MG (1875 MG, BID), PER ORAL
     Route: 048
     Dates: start: 20100922, end: 20110801
  2. WELCHOL [Suspect]
     Indication: DIARRHOEA
     Dosage: 375 MG (1875 MG, BID), PER ORAL; 370 MG (1875 MG, BID), PER ORAL
     Route: 048
     Dates: start: 20100922, end: 20110801
  3. LASIX [Concomitant]
  4. BENICAR [Suspect]
     Indication: HYPERTENSION
     Dosage: 20 MG (20 MG, QD), PER ORAL
     Route: 048
     Dates: start: 20100803, end: 20100804
  5. VALIUM [Suspect]
     Indication: PRODUCT USED FOR UNKNOWN INDICATION
     Dosage: 15 MG (6 MG, TID),PER ORAL
     Route: 048
     Dates: start: 20100803, end: 20100804
  6. ASPIRIN [Concomitant]

REACTIONS (8)
  - BLOOD GLUCOSE INCREASED [None]
  - ABDOMINAL DISCOMFORT [None]
  - HEADACHE [None]
  - GASTROINTESTINAL HAEMORRHAGE [None]
  - DIZZINESS [None]
  - LOSS OF CONSCIOUSNESS [None]
  - BREAST PAIN [None]
  - BLOOD PRESSURE DECREASED [None]
